FAERS Safety Report 5413477-X (Version None)
Quarter: 2007Q3

REPORT INFORMATION
  Report Type: 
  Country: None (occurrence: None)
  Receive Date: 20070814
  Receipt Date: 20070803
  Transmission Date: 20080115
  Serious: Yes (Other)
  Sender: FDA-Public Use
  Company Number: FR-JNJFOC-20070604797

PATIENT
  Age: 65 Year
  Sex: Female
  Weight: 53.5 kg

DRUGS (10)
  1. REMICADE [Suspect]
     Indication: RHEUMATOID ARTHRITIS
     Route: 042
  2. METHOTREXATE [Concomitant]
  3. CORTANCYL [Concomitant]
     Route: 048
  4. POTASSIUM CHLORIDE [Concomitant]
  5. SPECTAFOLDINE [Concomitant]
  6. OROCAL [Concomitant]
  7. DETENSIEL [Concomitant]
  8. OMEPRAZOLE [Concomitant]
  9. CODOLIPRANE [Concomitant]
  10. PARACETAMOL [Concomitant]

REACTIONS (1)
  - BREAST CANCER METASTATIC [None]
